FAERS Safety Report 8540998-3 (Version None)
Quarter: 2012Q2

REPORT INFORMATION
  Report Type: 
  Country: None (occurrence: None)
  Receive Date: 20120412
  Receipt Date: 20090715
  Transmission Date: 20120825
  Serious: Yes (Other)
  Sender: FDA-Public Use
  Company Number: PHEH2008US06333

PATIENT
  Age: 45 Year
  Sex: Female

DRUGS (4)
  1. ZOMETA [Suspect]
     Dosage: 90 MG, QMO, INFUSION
  2. TAMOXIFEN CITRATE [Concomitant]
  3. PERIDEX (CHLORHEXIDINE GLUCONATE) [Concomitant]
  4. AREDIA [Suspect]
     Dosage: INFUSION

REACTIONS (20)
  - INCISION SITE OEDEMA [None]
  - INCISION SITE ERYTHEMA [None]
  - TOOTH EXTRACTION [None]
  - ANXIETY [None]
  - INJURY [None]
  - HYPOPHAGIA [None]
  - SCAR [None]
  - EMOTIONAL DISTRESS [None]
  - OSTEONECROSIS [None]
  - DISCOMFORT [None]
  - PYREXIA [None]
  - LIFE EXPECTANCY SHORTENED [None]
  - ANHEDONIA [None]
  - TOOTH DISORDER [None]
  - WEIGHT INCREASED [None]
  - PHYSICAL DISABILITY [None]
  - JAW OPERATION [None]
  - PAIN IN JAW [None]
  - DENTURE WEARER [None]
  - JAW FRACTURE [None]
